FAERS Safety Report 5149666-1 (Version None)
Quarter: 2006Q4

REPORT INFORMATION
  Report Type: 
  Country: None (occurrence: None)
  Receive Date: 20061113
  Receipt Date: 20060707
  Transmission Date: 20070319
  Serious: No
  Sender: FDA-Public Use
  Company Number: US-GLAXOSMITHKLINE-A0611464A

PATIENT
  Age: 66 Year
  Sex: Male

DRUGS (7)
  1. COREG [Suspect]
     Indication: HYPERTENSION
     Dosage: 25MG PER DAY
     Route: 048
     Dates: start: 20060201
  2. FLOMAX [Concomitant]
  3. FUROSEMIDE [Concomitant]
  4. AVALIDE [Concomitant]
  5. ASPIRIN [Concomitant]
  6. STEROID [Concomitant]
  7. DIURETICS [Concomitant]

REACTIONS (1)
  - WEIGHT INCREASED [None]
